FAERS Safety Report 8401601-6 (Version None)
Quarter: 2012Q2

REPORT INFORMATION
  Report Type: 
  Country: None (occurrence: None)
  Receive Date: 20120529
  Receipt Date: 19920918
  Transmission Date: 20120825
  Serious: Yes (Death, Other)
  Sender: FDA-Public Use
  Company Number: 003844

PATIENT
  Age: 81 Year
  Sex: Female

DRUGS (9)
  1. ALFACALCIDOL (ALFACALCIDOL) [Concomitant]
  2. EPALRESTAT (EPALRESTAT) [Concomitant]
  3. PLETAL [Suspect]
     Dosage: 100 MG, DAILY DOSE, ORAL
     Route: 048
     Dates: start: 19920625, end: 19920829
  4. THIAMINE_COBALT_CHLOROPHYLLIN COMPLEX (THIAMINE_COBALT_CHLORPHYLLIN CO [Concomitant]
  5. INDELOXAZINE HYDROCHLORIDE (INDELOXAZINE HYDROCHLORIDE) [Concomitant]
  6. CALCIUM GLUCONATE [Concomitant]
  7. FAMOTIDINE [Concomitant]
  8. OBTYAIN FROM CORIOLUS VERSICOLOR (OBTAINED FROM CORIOLUS VERSICOLOR) [Concomitant]
  9. URSODESOXYCHOLIC ACID (URSODESOXYCHOLIC ACID) [Concomitant]

REACTIONS (7)
  - BRAIN STEM INFARCTION [None]
  - BACK PAIN [None]
  - LOSS OF CONSCIOUSNESS [None]
  - CEREBRAL HAEMORRHAGE [None]
  - MYOCARDIAL INFARCTION [None]
  - HYDRONEPHROSIS [None]
  - HAEMATURIA [None]
